FAERS Safety Report 16559114 (Version 1)
Quarter: 2019Q3

REPORT INFORMATION
  Report Type: Spontaneous
  Country: AR (occurrence: AR)
  Receive Date: 20190711
  Receipt Date: 20190711
  Transmission Date: 20191004
  Serious: Yes (Hospitalization, Other)
  Sender: FDA-Public Use
  Company Number: AR-AMGEN-ARGSP2019033695

PATIENT
  Age: 33 Year
  Sex: Female

DRUGS (1)
  1. ENBREL [Suspect]
     Active Substance: ETANERCEPT
     Indication: RHEUMATOID ARTHRITIS
     Dosage: 50 MG, QWK
     Route: 065
     Dates: start: 20190206, end: 201902

REACTIONS (14)
  - Ear discomfort [Not Recovered/Not Resolved]
  - Injection site discolouration [Not Recovered/Not Resolved]
  - Head discomfort [Not Recovered/Not Resolved]
  - Injection site swelling [Recovering/Resolving]
  - Laryngeal oedema [Not Recovered/Not Resolved]
  - Dyspnoea [Not Recovered/Not Resolved]
  - Heart rate increased [Not Recovered/Not Resolved]
  - Oropharyngeal discomfort [Not Recovered/Not Resolved]
  - Injection site pain [Recovering/Resolving]
  - Injection site warmth [Recovering/Resolving]
  - Hypersensitivity [Not Recovered/Not Resolved]
  - Throat tightness [Not Recovered/Not Resolved]
  - Injection site erythema [Not Recovered/Not Resolved]
  - Pharyngeal inflammation [Not Recovered/Not Resolved]

NARRATIVE: CASE EVENT DATE: 201902
